FAERS Safety Report 14525638 (Version 1)
Quarter: 2018Q1

REPORT INFORMATION
  Report Type: Spontaneous
  Country: FI (occurrence: FI)
  Receive Date: 20180213
  Receipt Date: 20180213
  Transmission Date: 20180509
  Serious: Yes (Hospitalization)
  Sender: FDA-Public Use
  Company Number: FI-PFIZER INC-2018060853

PATIENT
  Age: 30 Year
  Sex: Male

DRUGS (3)
  1. CHAMPIX [Suspect]
     Active Substance: VARENICLINE TARTRATE
     Dosage: UNK
  2. LAMOTRIGIN [Interacting]
     Active Substance: LAMOTRIGINE
     Indication: DEPRESSION
  3. LAMOTRIGIN [Interacting]
     Active Substance: LAMOTRIGINE
     Indication: PSYCHOTIC DISORDER

REACTIONS (4)
  - Physical assault [Unknown]
  - Abnormal behaviour [Unknown]
  - Drug interaction [Unknown]
  - Loss of consciousness [Unknown]
